FAERS Safety Report 9768652 (Version 1)
Quarter: 2013Q4

REPORT INFORMATION
  Report Type: Spontaneous
  Country: US (occurrence: US)
  Receive Date: 20131218
  Receipt Date: 20131218
  Transmission Date: 20140711
  Serious: No
  Sender: FDA-Public Use
  Company Number: US-009507513-1312USA007376

PATIENT
  Sex: Female

DRUGS (2)
  1. LOVASTATIN [Suspect]
     Dosage: UNK
     Route: 048
  2. CRESTOR [Concomitant]

REACTIONS (1)
  - Myalgia [Unknown]
